FAERS Safety Report 21731192 (Version 2)
Quarter: 2023Q1

REPORT INFORMATION
  Report Type: Other
  Country: GB (occurrence: GB)
  Receive Date: 20221215
  Receipt Date: 20230105
  Transmission Date: 20230418
  Serious: Yes (Hospitalization, Other)
  Sender: FDA-Public Use
  Company Number: None

PATIENT
  Age: 67 Year
  Sex: Male

DRUGS (28)
  1. SERTRALINE [Suspect]
     Active Substance: SERTRALINE HYDROCHLORIDE
     Indication: Product used for unknown indication
     Dosage: 100 MG, QD, AT NIGHT
     Route: 065
     Dates: start: 20220324
  2. CALCIUM CARBONATE\CHOLECALCIFEROL [Concomitant]
     Active Substance: CALCIUM CARBONATE\CHOLECALCIFEROL
     Indication: Osteoporosis
     Dosage: 1500 MILLIGRAM, QD, 750MG/200UNIT BID (TAKES 1OM AND 1ON)
     Route: 065
     Dates: end: 20220112
  3. ALENDRONIC ACID [Concomitant]
     Active Substance: ALENDRONIC ACID
     Indication: Product used for unknown indication
     Dosage: UNK, QD ONE TO BE TAKEN ON THE SAME DAY EACH WEEK
     Route: 065
     Dates: start: 20220324
  4. ALENDRONIC ACID [Concomitant]
     Active Substance: ALENDRONIC ACID
     Dosage: 70 MILLIGRAM, WEEKLY, ON THE SAME DAY EACH WEEK  - TUESDAY
     Route: 065
  5. LANSOPRAZOLE [Concomitant]
     Active Substance: LANSOPRAZOLE
     Indication: Product used for unknown indication
     Dosage: UNK GASTRO-RESISTANT CAPSULES 10 M
     Route: 065
     Dates: start: 20220324
  6. LANSOPRAZOLE [Concomitant]
     Active Substance: LANSOPRAZOLE
     Dosage: 30 MILLIGRAM, QD, EACH MORNING, GASTRO-RESISTANT CAPSULE
     Route: 065
  7. NAPROXEN [Concomitant]
     Active Substance: NAPROXEN
     Indication: Product used for unknown indication
     Dosage: UNK (ONE TO BE TAKEN TWICE A DAY 28 TABLET)
     Route: 065
     Dates: start: 20220307
  8. NAPROXEN [Concomitant]
     Active Substance: NAPROXEN
     Dosage: UNK UNK, BID (NAPROXEN 500MG TABLETS ONE TO BE TAKEN TWICE A DAY 28 TABLET - 1OM + 1ON)
     Route: 065
     Dates: start: 20220331
  9. NAPROXEN [Concomitant]
     Active Substance: NAPROXEN
     Dosage: 1000 MILLIGRAM, QD, 1 EVERY MORNING AND AT NIGHT
     Route: 065
  10. ACETAMINOPHEN [Concomitant]
     Active Substance: ACETAMINOPHEN
     Indication: Product used for unknown indication
     Dosage: UNK ONE OR TWO TO BE TAKEN EVERY 4-6 HOURS
     Route: 065
     Dates: start: 20220331
  11. ACETAMINOPHEN [Concomitant]
     Active Substance: ACETAMINOPHEN
     Dosage: UNK, ONE OR TWO TO BE TAKEN EVERY 4-6 HOURS - TAKES 2TDS - QDS (WITH TRAMADOL)
     Route: 065
  12. ALBUTEROL [Concomitant]
     Active Substance: ALBUTEROL
     Indication: Product used for unknown indication
     Dosage: UNK 100 MICROGRAMS/DOSE INHALER CFC FREE ONE OR TWO PUFFS TO BE INHALED UP TO FOUR TIMES A DAY
     Route: 065
     Dates: start: 20220324
  13. ALBUTEROL [Concomitant]
     Active Substance: ALBUTEROL
     Dosage: UNK, 100 MICROGRAMS/DOSE INHALER CFC FREE ONE OR TWO PUFFS TO BE INHALED UP TO FOUR TIMES A DAY
  14. TRAMADOL [Concomitant]
     Active Substance: TRAMADOL
     Indication: Product used for unknown indication
     Dosage: UNK (TRAMADOL 50MG CAPSULES TWO TO BE TAKEN INITIALLY THEN ONE OR TWO TO BE TAKEN EVERY FOUR TO SIX
     Route: 065
     Dates: start: 20220307
  15. TRAMADOL [Concomitant]
     Active Substance: TRAMADOL
     Dosage: UNK (TWO TO BE TAKEN INITIALLY THEN ONE OR TWO TO BE TAKEN EVERY FOUR TO SIX HOURS 140 CAPSULE)
     Dates: start: 20220331
  16. TRAMADOL [Concomitant]
     Active Substance: TRAMADOL
     Dosage: 50 MILLIGRAM, TWO TO BE TAKEN INITIALLY THEN ONE OR TWO TO BE TAKEN EVERY FOUR TO SIX HOURS
     Route: 065
  17. DOXYCYCLINE [Concomitant]
     Active Substance: DOXYCYCLINE
     Indication: Product used for unknown indication
     Dosage: UNK (ONE TO BE TAKEN EACH DAY 7 CAPSULE)
     Route: 065
     Dates: start: 20220323
  18. DOXYCYCLINE [Concomitant]
     Active Substance: DOXYCYCLINE
     Dosage: 100 MILLIGRAM, QD, 7 CAPSULE - COMPLETE
     Route: 065
  19. FEXOFENADINE [Concomitant]
     Active Substance: FEXOFENADINE HYDROCHLORIDE
     Indication: Product used for unknown indication
     Dosage: UNK (ONE TO BE TAKEN EACH DAY 30 TABLET)
     Route: 065
     Dates: start: 20220121
  20. FEXOFENADINE [Concomitant]
     Active Substance: FEXOFENADINE HYDROCHLORIDE
     Dosage: UNK (ONE TO BE TAKEN EACH DAY 30 TABLET)
     Route: 065
     Dates: start: 20220215
  21. FEXOFENADINE [Concomitant]
     Active Substance: FEXOFENADINE HYDROCHLORIDE
     Dosage: 120 MILLIGRAM, QD, 30 TABLET - 1 EVERY MORNING
     Route: 065
  22. AMOXICILLIN [Concomitant]
     Active Substance: AMOXICILLIN
     Indication: Product used for unknown indication
     Dosage: UNK (ONE TO BE TAKEN THREE TIMES A DAY)
     Route: 065
     Dates: start: 20220106
  23. AMOXICILLIN [Concomitant]
     Active Substance: AMOXICILLIN
     Dosage: 1500 MILLIGRAM, QD, 15 CAPSULE - COMPLETE
     Route: 065
  24. DALTEPARIN [Concomitant]
     Active Substance: DALTEPARIN
     Indication: Product used for unknown indication
     Dosage: UNK (5,000 UNITS IN 0.2ML INJECTION) (NJECT SUBCUTANEOUSLY THE CONTENTS OF 1 SYRINGE ONCE A DAY FOR
     Route: 058
     Dates: start: 20220307
  25. DALTEPARIN [Concomitant]
     Active Substance: DALTEPARIN
     Dosage: 0.2 MILLILITER, QD, INJECT SUBCUTANEOUSLY THE CONTENTS OF 1 SYRINGE ONCE A DAY FOR 23 DAYS AS DIRECT
     Route: 058
  26. SARILUMAB [Concomitant]
     Active Substance: SARILUMAB
     Indication: Product used for unknown indication
     Dosage: UNK 200 MG INJECTION (1 INJECTION EVERY 2 WEEKS IN KNEE, BUT STATES HE HASN^T HAD THESE FOR OVER 4 W
     Route: 065
     Dates: start: 20220201
  27. SARILUMAB [Concomitant]
     Active Substance: SARILUMAB
     Dosage: UNK (KIT. 1)
     Route: 065
     Dates: start: 20220204
  28. SARILUMAB [Concomitant]
     Active Substance: SARILUMAB
     Dosage: 1 DOSAGE FORM, 2 WEEKLY, 3 - HAS 1 INJECTION EVERY 2 WEEKS IN KNEE
     Route: 065

REACTIONS (2)
  - Bone density decreased [Unknown]
  - Femoral neck fracture [Unknown]
